FAERS Safety Report 8387979 (Version 5)
Quarter: 2014Q2

REPORT INFORMATION
  Report Type: Spontaneous
  Country: US (occurrence: US)
  Receive Date: 20120203
  Receipt Date: 20140613
  Transmission Date: 20141212
  Serious: Yes (Hospitalization)
  Sender: FDA-Public Use
  Company Number: US-GLAXOSMITHKLINE-A0779944A

PATIENT
  Age: 49 Year
  Sex: Female

DRUGS (3)
  1. LAMICTAL [Suspect]
     Indication: BIPOLAR DISORDER
     Dosage: 150MG TWICE PER DAY
     Route: 065
     Dates: start: 20090320
  2. WELLBUTRIN SR [Suspect]
     Indication: PRODUCT USED FOR UNKNOWN INDICATION
     Dosage: 150MG TWICE PER DAY
     Route: 065
     Dates: start: 200903
  3. CHEMOTHERAPY [Suspect]
     Indication: NEOPLASM MALIGNANT
     Route: 065

REACTIONS (15)
  - Neoplasm malignant [Unknown]
  - Disturbance in attention [Unknown]
  - Amnesia [Unknown]
  - Road traffic accident [Unknown]
  - Malaise [Unknown]
  - Emotional distress [Unknown]
  - Agitation [Unknown]
  - Dizziness [Unknown]
  - Renal failure [Unknown]
  - Back disorder [Unknown]
  - Visual acuity reduced [Not Recovered/Not Resolved]
  - Pharyngitis streptococcal [Not Recovered/Not Resolved]
  - Speech disorder [Not Recovered/Not Resolved]
  - Insomnia [Not Recovered/Not Resolved]
  - Oropharyngeal pain [Not Recovered/Not Resolved]
